FAERS Safety Report 19933945 (Version 1)
Quarter: 2021Q4

REPORT INFORMATION
  Report Type: Report from Study
  Country: US (occurrence: US)
  Receive Date: 20211008
  Receipt Date: 20211008
  Transmission Date: 20220303
  Serious: Yes (Life-Threatening)
  Sender: FDA-Public Use
  Company Number: US-TESAROUBC-US-2018TSO02137

PATIENT
  Age: 55 Year
  Sex: Male
  Weight: 67.2 kg

DRUGS (2)
  1. NIRAPARIB [Suspect]
     Active Substance: NIRAPARIB
     Indication: Bladder cancer stage IV
     Dosage: 200 MG, QD
     Route: 048
     Dates: start: 20180221
  2. DOSTARLIMAB [Suspect]
     Active Substance: DOSTARLIMAB
     Indication: Neoplasm malignant
     Dosage: 500 MG, UNK
     Route: 042
     Dates: start: 20180221, end: 20180221

REACTIONS (1)
  - Thrombocytopenia [Recovered/Resolved]

NARRATIVE: CASE EVENT DATE: 20180424
